FAERS Safety Report 12443847 (Version 1)
Quarter: 2016Q2

REPORT INFORMATION
  Report Type: Spontaneous
  Country: GB (occurrence: GB)
  Receive Date: 20160607
  Receipt Date: 20160607
  Transmission Date: 20160815
  Serious: Yes (Other)
  Sender: FDA-Public Use
  Company Number: GB-B. BRAUN MEDICAL INC.-1053440

PATIENT
  Age: 34 Year
  Sex: Female
  Weight: 72 kg

DRUGS (7)
  1. SUPRECUR [Concomitant]
     Active Substance: BUSERELIN
  2. LIDOCAINE HYDROCHLORIDE AND DEXTROSE [Suspect]
     Active Substance: LIDOCAINE HYDROCHLORIDE\LIDOCAINE HYDROCHLORIDE ANHYDROUS
  3. GONAL-F [Concomitant]
     Active Substance: FOLLITROPIN
  4. MIDAZOLAM [Suspect]
     Active Substance: MIDAZOLAM\MIDAZOLAM HYDROCHLORIDE
     Route: 042
     Dates: start: 20150622, end: 20150622
  5. FENTANYL. [Suspect]
     Active Substance: FENTANYL
     Route: 042
     Dates: start: 20150622, end: 20150622
  6. TEMAZEPAM. [Suspect]
     Active Substance: TEMAZEPAM
     Route: 048
     Dates: start: 20150622, end: 20150622
  7. OVITRELLE [Concomitant]
     Active Substance: CHORIOGONADOTROPIN ALFA

REACTIONS (1)
  - Loss of consciousness [Recovered/Resolved]

NARRATIVE: CASE EVENT DATE: 20150622
